FAERS Safety Report 17578125 (Version 1)
Quarter: 2020Q1

REPORT INFORMATION
  Report Type: Spontaneous
  Country: FR (occurrence: FR)
  Receive Date: 20200324
  Receipt Date: 20200324
  Transmission Date: 20200409
  Serious: Yes (Death)
  Sender: FDA-Public Use
  Company Number: FR-MYLANLABS-2020M1017227

PATIENT
  Age: 35 Year
  Sex: Male
  Weight: 54 kg

DRUGS (3)
  1. PIPERACILLIN AND TAZOBACTAM [Suspect]
     Active Substance: PIPERACILLIN SODIUM\TAZOBACTAM SODIUM
     Indication: INFECTION
     Dosage: UNK
     Route: 041
     Dates: start: 20191209
  2. BACTRIM [Suspect]
     Active Substance: SULFAMETHOXAZOLE\TRIMETHOPRIM
     Indication: INFECTION
     Dosage: UNK
     Route: 041
     Dates: start: 20191209
  3. OFEV [Suspect]
     Active Substance: NINTEDANIB
     Indication: PULMONARY FIBROSIS
     Dosage: 150 MILLIGRAM, QD
     Route: 048
     Dates: start: 20191219, end: 20191231

REACTIONS (2)
  - Rash morbilliform [Not Recovered/Not Resolved]
  - Acute respiratory distress syndrome [Fatal]

NARRATIVE: CASE EVENT DATE: 20191231
